FAERS Safety Report 11690374 (Version 25)
Quarter: 2020Q1

REPORT INFORMATION
  Report Type: Report from Study
  Country: US (occurrence: US)
  Receive Date: 20151102
  Receipt Date: 20200314
  Transmission Date: 20200409
  Serious: Yes (Hospitalization, Other)
  Sender: FDA-Public Use
  Company Number: US-ACTELION-A-NJ2015-126320

PATIENT
  Age: 35 Year
  Sex: Female
  Weight: 63.49 kg

DRUGS (11)
  1. VELETRI [Suspect]
     Active Substance: EPOPROSTENOL
     Indication: PULMONARY ARTERIAL HYPERTENSION
     Dosage: 90 NG/KG, PER MIN
     Route: 042
  2. VELETRI [Suspect]
     Active Substance: EPOPROSTENOL
     Dosage: 50 NG/KG, PER MIN
     Route: 042
     Dates: start: 20140415
  3. ADEMPAS [Suspect]
     Active Substance: RIOCIGUAT
     Dosage: 2.5 MG
     Route: 065
  4. VELETRI [Suspect]
     Active Substance: EPOPROSTENOL
     Dosage: 90 NG/KG, PER MIN
     Route: 042
  5. VELETRI [Suspect]
     Active Substance: EPOPROSTENOL
     Dosage: UNK UNK, PER MIN
     Route: 042
  6. REVATIO [Suspect]
     Active Substance: SILDENAFIL CITRATE
     Indication: PRODUCT USED FOR UNKNOWN INDICATION
     Route: 065
  7. ADCIRCA [Suspect]
     Active Substance: TADALAFIL
     Indication: PRODUCT USED FOR UNKNOWN INDICATION
     Route: 065
  8. ADEMPAS [Suspect]
     Active Substance: RIOCIGUAT
     Indication: PRODUCT USED FOR UNKNOWN INDICATION
     Dosage: UNK
     Route: 065
     Dates: start: 20190710
  9. ADEMPAS [Suspect]
     Active Substance: RIOCIGUAT
     Dosage: 1.5 MG, TID
     Route: 065
     Dates: start: 201912
  10. LETAIRIS [Suspect]
     Active Substance: AMBRISENTAN
     Indication: PULMONARY ARTERIAL HYPERTENSION
     Dosage: 10 MG, QD
     Route: 065
     Dates: start: 20141029
  11. ADEMPAS [Suspect]
     Active Substance: RIOCIGUAT
     Dosage: 2 MG
     Route: 065

REACTIONS (38)
  - Cholelithiasis [Unknown]
  - Dyspnoea exertional [Unknown]
  - Nausea [Unknown]
  - Lip swelling [Unknown]
  - Cholecystitis [Unknown]
  - Anaesthetic complication cardiac [Unknown]
  - Headache [Unknown]
  - Constipation [Not Recovered/Not Resolved]
  - Device breakage [Unknown]
  - Vision blurred [Unknown]
  - Scab [Unknown]
  - Abdominal distension [Unknown]
  - Abdominal pain upper [Not Recovered/Not Resolved]
  - Catheter site haemorrhage [Unknown]
  - Hypersensitivity [Unknown]
  - Post procedural oedema [Unknown]
  - Peripheral swelling [Recovered/Resolved]
  - Pulmonary arterial pressure increased [Unknown]
  - Pain in extremity [Unknown]
  - Catheter site erythema [Recovering/Resolving]
  - Pain in jaw [Unknown]
  - Swelling [Unknown]
  - Retching [Unknown]
  - Abdominal pain [Recovered/Resolved]
  - Skin laceration [Unknown]
  - Rash erythematous [Unknown]
  - Device connection issue [Unknown]
  - Eye swelling [Unknown]
  - Post procedural infection [Unknown]
  - Drain placement [Unknown]
  - Cholecystectomy [Recovered/Resolved]
  - Heart rate decreased [Unknown]
  - Diarrhoea [Unknown]
  - Swelling face [Unknown]
  - Pain [Unknown]
  - Weight increased [Unknown]
  - Vomiting [Unknown]
  - Flatulence [Unknown]

NARRATIVE: CASE EVENT DATE: 201601
